FAERS Safety Report 24216293 (Version 1)
Quarter: 2024Q3

REPORT INFORMATION
  Report Type: Spontaneous
  Country: CN (occurrence: CN)
  Receive Date: 20240816
  Receipt Date: 20240816
  Transmission Date: 20241017
  Serious: Yes (Life-Threatening, Hospitalization, Other)
  Sender: RELIANCE GENEMEDIX
  Company Number: CN-Reliance-000412

PATIENT
  Age: 58 Year
  Sex: Male

DRUGS (2)
  1. CAPECITABINE [Suspect]
     Active Substance: CAPECITABINE
     Indication: Rectal adenocarcinoma
     Dosage: ON THE FIRST 14 DAYS OF EACH 21-DAY CYCLE
     Route: 048
  2. OXALIPLATIN [Concomitant]
     Active Substance: OXALIPLATIN
     Indication: Rectal adenocarcinoma
     Route: 042

REACTIONS (3)
  - Cardiac arrest [Recovered/Resolved]
  - Cardiogenic shock [Recovered/Resolved]
  - Cardiotoxicity [Recovering/Resolving]
